FAERS Safety Report 16607996 (Version 1)
Quarter: 2019Q3

REPORT INFORMATION
  Report Type: Spontaneous
  Country: DE (occurrence: DE)
  Receive Date: 20190722
  Receipt Date: 20190722
  Transmission Date: 20191004
  Serious: Yes (Life-Threatening, Hospitalization)
  Sender: FDA-Public Use
  Company Number: DE-TEVA-2019-DE-1079753

PATIENT
  Age: 71 Year
  Sex: Male
  Weight: 72 kg

DRUGS (12)
  1. AZATHIOPRINE. [Suspect]
     Active Substance: AZATHIOPRINE
     Dosage: 50 MG, 1-0-0-0, TABLET
     Route: 048
  2. ARANESP 50MIKROGRAMM MIT ANS [Concomitant]
     Dosage: 60 MICROGRAM / WEEK, 1-0-0-0, SOLUTION FOR INJECTION / INFUSION
     Route: 058
  3. AMLODIPIN [Concomitant]
     Active Substance: AMLODIPINE BESYLATE
     Dosage: 5 MG, 0-1-1-0, TABLET
     Route: 048
  4. DECOSTRIOL 0,25MIKROGRAMM [Concomitant]
     Dosage: 0.25 MICROGRAM, 1-0-0-0, KAPSELN
     Route: 048
  5. CALCIUMACETAT 950MG [Concomitant]
     Dosage: 950 MG, 1-1-1-0, TABLET
     Route: 048
  6. ATORVASTATIN [Concomitant]
     Active Substance: ATORVASTATIN
     Dosage: 40 MG, 0-0-0-1, TABLET
     Route: 048
  7. PANTOPRAZOL [Concomitant]
     Active Substance: PANTOPRAZOLE SODIUM
     Dosage: 40 MG, 1-0-1-0, TABLET
     Route: 048
  8. LACTULOSE. [Concomitant]
     Active Substance: LACTULOSE
     Dosage: 3.25 G / ML, NEED, SOLUTION
     Route: 048
  9. PREDNISOLONE. [Suspect]
     Active Substance: PREDNISOLONE
     Dosage: 20 MG, 0.25-0-0-0, TABLET
     Route: 048
  10. ASS 100 [Concomitant]
     Active Substance: ASPIRIN
     Dosage: 100 MG, 1-0-0-0, TABLET
     Route: 048
  11. TORASEMID [Concomitant]
     Active Substance: TORSEMIDE
     Dosage: 100 MG, 1-0-0-0, TABLET
     Route: 048
  12. METOPROLOL SUCCINAT [Concomitant]
     Dosage: 95 MG, 0-0-1-0, TABLET
     Route: 048

REACTIONS (6)
  - Wheezing [Unknown]
  - Dyspnoea exertional [Unknown]
  - Dyspnoea [Unknown]
  - Productive cough [Unknown]
  - Oedema peripheral [Unknown]
  - Cough [Unknown]
